FAERS Safety Report 7387144-X (Version None)
Quarter: 2011Q1

REPORT INFORMATION
  Report Type: 
  Country: None (occurrence: None)
  Receive Date: 20110331
  Receipt Date: 20110329
  Transmission Date: 20110831
  Serious: Yes (Death)
  Sender: FDA-Public Use
  Company Number: A0916575A

PATIENT
  Sex: Male

DRUGS (1)
  1. PROMACTA [Suspect]
     Route: 048
     Dates: start: 20110225

REACTIONS (1)
  - DEATH [None]
